FAERS Safety Report 7798253-5 (Version None)
Quarter: 2011Q4

REPORT INFORMATION
  Report Type: 
  Country: None (occurrence: None)
  Receive Date: 20111005
  Receipt Date: 20110928
  Transmission Date: 20120403
  Serious: Yes (Hospitalization)
  Sender: FDA-Public Use
  Company Number: CA-NOVOPROD-336197

PATIENT

DRUGS (2)
  1. VICTOZA [Suspect]
     Indication: DIABETES MELLITUS
     Dosage: 0.6 MG, QD
     Route: 065
  2. INSULIN [Concomitant]

REACTIONS (3)
  - MALAISE [None]
  - BLOOD GLUCOSE INCREASED [None]
  - WEIGHT DECREASED [None]
